FAERS Safety Report 14454015 (Version 2)
Quarter: 2018Q1

REPORT INFORMATION
  Report Type: Report from Study
  Country: US (occurrence: US)
  Receive Date: 20180129
  Receipt Date: 20180306
  Transmission Date: 20180509
  Serious: Yes (Life-Threatening, Hospitalization, Other)
  Sender: FDA-Public Use
  Company Number: US-MYLANLABS-2018M1006599

PATIENT
  Age: 58 Year
  Sex: Female

DRUGS (2)
  1. BACTRIM [Suspect]
     Active Substance: SULFAMETHOXAZOLE\TRIMETHOPRIM
     Indication: PRODUCT USED FOR UNKNOWN INDICATION
     Dosage: UNK
  2. CLOZAPINE. [Suspect]
     Active Substance: CLOZAPINE
     Indication: SCHIZOPHRENIA
     Dosage: 300 MG, HS
     Dates: start: 20171117, end: 20180110

REACTIONS (19)
  - Cerebrovascular accident [Unknown]
  - Monocyte count decreased [Unknown]
  - Blood glucose decreased [Unknown]
  - Neutropenia [Not Recovered/Not Resolved]
  - White blood cell count decreased [Not Recovered/Not Resolved]
  - Haematocrit decreased [Recovered/Resolved]
  - Blood creatinine increased [Unknown]
  - Glomerular filtration rate decreased [Unknown]
  - Lymphocyte count decreased [Not Recovered/Not Resolved]
  - Sepsis [Unknown]
  - Terminal state [Unknown]
  - Lymphocyte percentage increased [Unknown]
  - Platelet count decreased [Not Recovered/Not Resolved]
  - Mean platelet volume increased [Recovered/Resolved]
  - Haemoglobin decreased [Recovered/Resolved]
  - Protein total decreased [Unknown]
  - Mean cell haemoglobin concentration decreased [Recovered/Resolved]
  - Anion gap increased [Unknown]
  - Red blood cell count decreased [Recovered/Resolved]

NARRATIVE: CASE EVENT DATE: 20171127
